FAERS Safety Report 10043236 (Version 2)
Quarter: 2014Q2

REPORT INFORMATION
  Report Type: Spontaneous
  Country: US (occurrence: US)
  Receive Date: 20140328
  Receipt Date: 20140418
  Transmission Date: 20141212
  Serious: Yes (Other)
  Sender: FDA-Public Use
  Company Number: US-DRREDDYS-USA/USA/14/0039213

PATIENT
  Age: 19 Year
  Sex: Female

DRUGS (1)
  1. ZENATANE [Suspect]
     Indication: ACNE CYSTIC
     Route: 065
     Dates: start: 20140205

REACTIONS (2)
  - Haematochezia [Unknown]
  - Abdominal discomfort [Unknown]
